FAERS Safety Report 17778872 (Version 1)
Quarter: 2020Q2

REPORT INFORMATION
  Report Type: Spontaneous
  Country: US (occurrence: US)
  Receive Date: 20200514
  Receipt Date: 20200514
  Transmission Date: 20200714
  Serious: Yes (Other)
  Sender: FDA-Public Use
  Company Number: US-AUROBINDO-AUR-APL-2020-007312

PATIENT
  Sex: Female

DRUGS (1)
  1. QUETIAPINE. [Suspect]
     Active Substance: QUETIAPINE
     Indication: PRODUCT USED FOR UNKNOWN INDICATION
     Dosage: UNK
     Route: 065
     Dates: end: 2006

REACTIONS (8)
  - Muscle twitching [Recovering/Resolving]
  - Limb discomfort [Recovering/Resolving]
  - Dyskinesia [Recovering/Resolving]
  - Dysstasia [Recovering/Resolving]
  - Muscle rigidity [Recovering/Resolving]
  - Major depression [Recovering/Resolving]
  - Psychiatric symptom [Recovering/Resolving]
  - Blood pressure abnormal [Recovering/Resolving]
